FAERS Safety Report 17921684 (Version 6)
Quarter: 2021Q4

REPORT INFORMATION
  Report Type: Spontaneous
  Country: US (occurrence: US)
  Receive Date: 20200622
  Receipt Date: 20211124
  Transmission Date: 20220304
  Serious: Yes (Hospitalization, Other)
  Sender: FDA-Public Use
  Company Number: US-GILEAD-2020-0474182

PATIENT
  Age: 59 Year
  Sex: Male
  Weight: 83.9 kg

DRUGS (42)
  1. TRUVADA [Suspect]
     Active Substance: EMTRICITABINE\TENOFOVIR DISOPROXIL FUMARATE
     Indication: HIV infection
     Dosage: UNK
     Route: 048
     Dates: start: 2007, end: 2018
  2. TRUVADA [Suspect]
     Active Substance: EMTRICITABINE\TENOFOVIR DISOPROXIL FUMARATE
     Dosage: UNK
     Route: 048
     Dates: start: 20070101, end: 20180101
  3. TRUVADA [Suspect]
     Active Substance: EMTRICITABINE\TENOFOVIR DISOPROXIL FUMARATE
     Dosage: UNK
     Route: 048
     Dates: start: 2009, end: 2018
  4. TRUVADA [Suspect]
     Active Substance: EMTRICITABINE\TENOFOVIR DISOPROXIL FUMARATE
     Dosage: UNK
     Route: 048
     Dates: start: 2004, end: 2008
  5. TRUVADA [Suspect]
     Active Substance: EMTRICITABINE\TENOFOVIR DISOPROXIL FUMARATE
     Dosage: UNK
     Route: 048
     Dates: start: 20080225, end: 20160607
  6. TRUVADA [Suspect]
     Active Substance: EMTRICITABINE\TENOFOVIR DISOPROXIL FUMARATE
     Dosage: UNK
     Route: 048
     Dates: start: 20080225, end: 20090323
  7. TRUVADA [Suspect]
     Active Substance: EMTRICITABINE\TENOFOVIR DISOPROXIL FUMARATE
     Dosage: UNK
     Route: 048
     Dates: start: 20090323, end: 20101014
  8. TRUVADA [Suspect]
     Active Substance: EMTRICITABINE\TENOFOVIR DISOPROXIL FUMARATE
     Dosage: UNK
     Route: 048
     Dates: start: 20150305, end: 20150607
  9. TRUVADA [Suspect]
     Active Substance: EMTRICITABINE\TENOFOVIR DISOPROXIL FUMARATE
     Dosage: UNK
     Route: 048
     Dates: start: 20140824, end: 20141119
  10. TRUVADA [Suspect]
     Active Substance: EMTRICITABINE\TENOFOVIR DISOPROXIL FUMARATE
     Dosage: UNK
     Route: 048
     Dates: start: 20150305, end: 20160607
  11. TRUVADA [Suspect]
     Active Substance: EMTRICITABINE\TENOFOVIR DISOPROXIL FUMARATE
     Dosage: UNK
     Route: 048
     Dates: start: 20090323, end: 20110514
  12. TRUVADA [Suspect]
     Active Substance: EMTRICITABINE\TENOFOVIR DISOPROXIL FUMARATE
     Dosage: UNK
     Route: 048
     Dates: start: 20080225, end: 20090317
  13. TRUVADA [Suspect]
     Active Substance: EMTRICITABINE\TENOFOVIR DISOPROXIL FUMARATE
     Dosage: UNK
     Route: 048
     Dates: start: 20140828, end: 20141219
  14. VIREAD [Suspect]
     Active Substance: TENOFOVIR DISOPROXIL FUMARATE
     Indication: HIV infection
     Dosage: UNK
     Route: 048
     Dates: start: 200701, end: 201801
  15. DESCOVY [Concomitant]
     Active Substance: EMTRICITABINE\TENOFOVIR ALAFENAMIDE FUMARATE
  16. TYLENOL [Concomitant]
     Active Substance: ACETAMINOPHEN
  17. ACYCLOVIR ABBOTT VIAL [Concomitant]
  18. AMOXICILLIN [Concomitant]
     Active Substance: AMOXICILLIN
  19. ASPIRIN [Concomitant]
     Active Substance: ASPIRIN
  20. XANAX [Concomitant]
     Active Substance: ALPRAZOLAM
  21. VALIUM [Concomitant]
     Active Substance: DIAZEPAM
  22. ATIVAN [Concomitant]
     Active Substance: LORAZEPAM
  23. BUMEX [Concomitant]
     Active Substance: BUMETANIDE
  24. IBUPROFEN [Concomitant]
     Active Substance: IBUPROFEN
  25. NAPROXEN [Concomitant]
     Active Substance: NAPROXEN
  26. DICLOFENAC [Concomitant]
     Active Substance: DICLOFENAC
  27. EMTRIVA [Concomitant]
     Active Substance: EMTRICITABINE
  28. ISENTRESS [Concomitant]
     Active Substance: RALTEGRAVIR POTASSIUM
  29. NORVIR [Concomitant]
     Active Substance: RITONAVIR
  30. REYATAZ [Concomitant]
     Active Substance: ATAZANAVIR SULFATE
  31. VIRAMUNE [Concomitant]
     Active Substance: NEVIRAPINE
  32. DESONIDE [Concomitant]
     Active Substance: DESONIDE
  33. TEMAZEPAM [Concomitant]
     Active Substance: TEMAZEPAM
  34. CHANTIX [Concomitant]
     Active Substance: VARENICLINE TARTRATE
  35. LISINOPRIL [Concomitant]
     Active Substance: LISINOPRIL
  36. GABAPENTIN [Concomitant]
     Active Substance: GABAPENTIN
  37. PREVIDENT [Concomitant]
     Active Substance: SODIUM FLUORIDE
  38. HARVONI [Concomitant]
     Active Substance: LEDIPASVIR\SOFOSBUVIR
  39. AMBIEN [Concomitant]
     Active Substance: ZOLPIDEM TARTRATE
  40. FLUVIRIN A [Concomitant]
  41. METRONIDAZOLE [Concomitant]
     Active Substance: METRONIDAZOLE
  42. XYZAL [Concomitant]
     Active Substance: LEVOCETIRIZINE DIHYDROCHLORIDE

REACTIONS (21)
  - Pelvic fracture [Recovered/Resolved]
  - Osteoporosis [Not Recovered/Not Resolved]
  - Hand fracture [Recovered/Resolved]
  - Rib fracture [Recovered/Resolved]
  - Scapula fracture [Recovered/Resolved]
  - Clavicle fracture [Unknown]
  - Multiple fractures [Recovered/Resolved]
  - Osteonecrosis [Unknown]
  - Renal injury [Unknown]
  - Avulsion fracture [Unknown]
  - Spinal fracture [Unknown]
  - Tooth loss [Not Recovered/Not Resolved]
  - Bone density decreased [Not Recovered/Not Resolved]
  - Bone loss [Unknown]
  - Skeletal injury [Unknown]
  - Mobility decreased [Not Recovered/Not Resolved]
  - Pain [Unknown]
  - Emotional distress [Unknown]
  - Foot fracture [Unknown]
  - Depression [Unknown]
  - Anxiety [Unknown]

NARRATIVE: CASE EVENT DATE: 20110108
